FAERS Safety Report 13511098 (Version 3)
Quarter: 2017Q2

REPORT INFORMATION
  Report Type: Spontaneous
  Country: FR (occurrence: FR)
  Receive Date: 20170503
  Receipt Date: 20170612
  Transmission Date: 20170830
  Serious: Yes (Hospitalization, Other)
  Sender: FDA-Public Use
  Company Number: FR-BAUSCH-BL-2017-012435

PATIENT
  Age: 54 Year
  Sex: Male

DRUGS (5)
  1. METRONIDAZOLE. [Suspect]
     Active Substance: METRONIDAZOLE
     Indication: ABDOMINAL ABSCESS
     Route: 065
     Dates: start: 201202
  2. CEFTAZIDIME. [Suspect]
     Active Substance: CEFTAZIDIME
     Indication: ABDOMINAL ABSCESS
     Route: 065
     Dates: start: 201202
  3. PIPERACILLIN/TAZOBACTAM [Suspect]
     Active Substance: PIPERACILLIN SODIUM\TAZOBACTAM SODIUM
     Indication: ABDOMINAL ABSCESS
     Route: 065
     Dates: start: 2012
  4. IMIPENEM [Suspect]
     Active Substance: IMIPENEM
     Indication: ESCHERICHIA SEPSIS
     Route: 065
     Dates: start: 2012
  5. AMIKACIN SULFATE. [Suspect]
     Active Substance: AMIKACIN SULFATE
     Indication: ABDOMINAL ABSCESS
     Route: 065
     Dates: start: 2012

REACTIONS (2)
  - Clostridium bacteraemia [Recovered/Resolved]
  - Clostridial sepsis [Recovered/Resolved]

NARRATIVE: CASE EVENT DATE: 2012
